FAERS Safety Report 4818482-X (Version None)
Quarter: 2005Q4

REPORT INFORMATION
  Report Type: 
  Country: None (occurrence: None)
  Receive Date: 20051102
  Receipt Date: 20051031
  Transmission Date: 20060501
  Serious: Yes (Hospitalization)
  Sender: FDA-Public Use
  Company Number: JP-AVENTIS-200513201JP

PATIENT
  Age: 80 Year
  Sex: Female

DRUGS (2)
  1. AMARYL [Suspect]
     Route: 048
  2. BASEN [Suspect]

REACTIONS (2)
  - HYPOGLYCAEMIC COMA [None]
  - LOSS OF CONSCIOUSNESS [None]
